FAERS Safety Report 5082188-5 (Version None)
Quarter: 2006Q3

REPORT INFORMATION
  Report Type: 
  Country: None (occurrence: None)
  Receive Date: 20060817
  Receipt Date: 20060519
  Transmission Date: 20061208
  Serious: Yes (Other)
  Sender: FDA-Public Use
  Company Number: US-BAYER-200612135BCC

PATIENT
  Age: 35 Year
  Sex: Male
  Weight: 68 kg

DRUGS (1)
  1. ALKA-SELTZER PLUS EFFERVESCENT COLD [Suspect]
     Indication: NASOPHARYNGITIS
     Dosage: UNIT DOSE: 250 MG
     Route: 048
     Dates: start: 20060508, end: 20060518

REACTIONS (1)
  - HAEMATOCHEZIA [None]
